FAERS Safety Report 6944243-1 (Version None)
Quarter: 2010Q3

REPORT INFORMATION
  Report Type: 
  Country: None (occurrence: None)
  Receive Date: 20100827
  Receipt Date: 20100818
  Transmission Date: 20110219
  Serious: No
  Sender: FDA-Public Use
  Company Number: US-BIOGENIDEC-2010BI029183

PATIENT
  Age: 44 Year
  Sex: Female

DRUGS (1)
  1. TYSABRI [Suspect]
     Indication: MULTIPLE SCLEROSIS
     Route: 042
     Dates: start: 20081117

REACTIONS (9)
  - EYE SWELLING [None]
  - INCREASED UPPER AIRWAY SECRETION [None]
  - NASAL SEPTUM DEVIATION [None]
  - POST PROCEDURAL COMPLICATION [None]
  - PRODUCTIVE COUGH [None]
  - PYREXIA [None]
  - SCAB [None]
  - SINUSITIS [None]
  - UPPER RESPIRATORY TRACT INFECTION [None]
